FAERS Safety Report 14171817 (Version 2)
Quarter: 2017Q4

REPORT INFORMATION
  Report Type: Spontaneous
  Country: NL (occurrence: NL)
  Receive Date: 20171108
  Receipt Date: 20171120
  Transmission Date: 20180321
  Serious: No
  Sender: FDA-Public Use
  Company Number: NL-009507513-1708NLD005485

PATIENT
  Sex: Male

DRUGS (3)
  1. HYDROCHLOROTHIAZIDE. [Concomitant]
     Active Substance: HYDROCHLOROTHIAZIDE
     Dosage: UNK
  2. GREPID [Concomitant]
     Active Substance: CLOPIDOGREL BESILATE
     Dosage: UNK
  3. EZETROL [Suspect]
     Active Substance: EZETIMIBE
     Dosage: UNK
     Route: 048
     Dates: start: 2016, end: 201710

REACTIONS (12)
  - Abnormal behaviour [Unknown]
  - Gait disturbance [Unknown]
  - Neck pain [Unknown]
  - General physical health deterioration [Unknown]
  - Back pain [Unknown]
  - Dizziness [Unknown]
  - Muscular weakness [Not Recovered/Not Resolved]
  - Flatulence [Unknown]
  - Myalgia [Unknown]
  - Musculoskeletal disorder [Unknown]
  - Malaise [Unknown]
  - Nausea [Unknown]
